FAERS Safety Report 5091450-1 (Version None)
Quarter: 2006Q3

REPORT INFORMATION
  Report Type: 
  Country: None (occurrence: None)
  Receive Date: 20060829
  Receipt Date: 20060822
  Transmission Date: 20061208
  Serious: Yes (Hospitalization)
  Sender: FDA-Public Use
  Company Number: FR-BRISTOL-MYERS SQUIBB COMPANY-13491147

PATIENT
  Age: 26 Year
  Sex: Male

DRUGS (2)
  1. ATENOLOL [Suspect]
     Indication: LONG QT SYNDROME CONGENITAL
     Route: 048
  2. CORGARD [Suspect]
     Indication: LONG QT SYNDROME CONGENITAL
     Route: 048

REACTIONS (1)
  - CARDIAC ARREST [None]
